FAERS Safety Report 18742329 (Version 1)
Quarter: 2021Q1

REPORT INFORMATION
  Report Type: Spontaneous
  Country: US (occurrence: US)
  Receive Date: 20210114
  Receipt Date: 20210114
  Transmission Date: 20210419
  Serious: Yes (Other)
  Sender: FDA-Public Use
  Company Number: US-FRESENIUS KABI-FK202100558

PATIENT
  Age: 31 Year
  Sex: Female

DRUGS (4)
  1. BLEOMYCIN [Suspect]
     Active Substance: BLEOMYCIN SULFATE
     Indication: OVARIAN GERM CELL TERATOMA STAGE II
     Dosage: THREE CYCLES
     Route: 065
  2. NO DRUG NAME [Concomitant]
     Active Substance: UNSPECIFIED INGREDIENT
     Indication: PRODUCT USED FOR UNKNOWN INDICATION
     Route: 065
     Dates: end: 201809
  3. ETOPOSIDE (MANUFACTURER UNKNOWN) [Suspect]
     Active Substance: ETOPOSIDE
     Indication: OVARIAN GERM CELL TERATOMA STAGE II
     Dosage: THREE CYCLES
     Route: 065
  4. CISPLATIN (MANUFACTURER UNKNOWN) [Suspect]
     Active Substance: CISPLATIN
     Indication: OVARIAN GERM CELL TERATOMA STAGE II
     Dosage: THREE CYCLES
     Route: 065

REACTIONS (1)
  - Acute kidney injury [Unknown]
